FAERS Safety Report 11080747 (Version 1)
Quarter: 2015Q2

REPORT INFORMATION
  Report Type: Spontaneous
  Country: US (occurrence: None)
  Receive Date: 20150430
  Receipt Date: 20150430
  Transmission Date: 20150821
  Serious: No
  Sender: FDA-Public Use
  Company Number: None

PATIENT
  Age: 45 Year
  Sex: Female
  Weight: 71.22 kg

DRUGS (2)
  1. PRIMADONE [Concomitant]
  2. KEPPRA [Suspect]
     Active Substance: LEVETIRACETAM
     Indication: SEIZURE
     Route: 048
     Dates: start: 20050411, end: 20150429

REACTIONS (12)
  - Erythema [None]
  - Pain in extremity [None]
  - Headache [None]
  - Rash [None]
  - Tinnitus [None]
  - Aggression [None]
  - Family stress [None]
  - Sinus disorder [None]
  - Ear swelling [None]
  - Loss of employment [None]
  - Marital problem [None]
  - Job dissatisfaction [None]

NARRATIVE: CASE EVENT DATE: 20050411
